FAERS Safety Report 13689256 (Version 1)
Quarter: 2017Q2

REPORT INFORMATION
  Report Type: Spontaneous
  Country: US (occurrence: US)
  Receive Date: 20170625
  Receipt Date: 20170625
  Transmission Date: 20170830
  Serious: Yes (Life-Threatening, Disabling)
  Sender: FDA-Public Use
  Company Number: None

PATIENT
  Age: 37 Year
  Sex: Female
  Weight: 45 kg

DRUGS (2)
  1. MULTI.VITAMIN [Concomitant]
  2. ALPRAZOLAM 2MG [Suspect]
     Active Substance: ALPRAZOLAM
     Indication: ANXIETY
     Dosage: ?          OTHER STRENGTH:MG;QUANTITY:1 TABLET(S);?
     Route: 048

REACTIONS (29)
  - Visual impairment [None]
  - Pain [None]
  - Alopecia [None]
  - Dizziness [None]
  - Withdrawal syndrome [None]
  - Insomnia [None]
  - Speech disorder [None]
  - Bladder spasm [None]
  - Bedridden [None]
  - Hypoacusis [None]
  - Amnesia [None]
  - Loss of personal independence in daily activities [None]
  - Psychotic disorder [None]
  - Impaired work ability [None]
  - Skin disorder [None]
  - Feeling abnormal [None]
  - Agoraphobia [None]
  - Nausea [None]
  - Anger [None]
  - Drug tolerance increased [None]
  - Seizure [None]
  - Syncope [None]
  - Dyspnoea [None]
  - Fatigue [None]
  - Pollakiuria [None]
  - Cognitive disorder [None]
  - Feeding disorder [None]
  - Chest discomfort [None]
  - Impaired driving ability [None]

NARRATIVE: CASE EVENT DATE: 20170122
